FAERS Safety Report 8979440 (Version 4)
Quarter: 2013Q2

REPORT INFORMATION
  Report Type: Report from Study
  Country: GB (occurrence: GB)
  Receive Date: 20121221
  Receipt Date: 20130603
  Transmission Date: 20140414
  Serious: Yes (Death, Hospitalization)
  Sender: FDA-Public Use
  Company Number: GB-PFIZER INC-2012319655

PATIENT
  Age: 60 Year
  Sex: Female
  Weight: 58 kg

DRUGS (1)
  1. CELECOXIB [Suspect]
     Indication: BREAST CANCER
     Dosage: 400 MG
     Dates: start: 20120710, end: 20121204

REACTIONS (1)
  - Thrombotic thrombocytopenic purpura [Fatal]
